FAERS Safety Report 23869365 (Version 2)
Quarter: 2024Q2

REPORT INFORMATION
  Report Type: Report from Study
  Country: JP (occurrence: JP)
  Receive Date: 20240517
  Receipt Date: 20240527
  Transmission Date: 20240716
  Serious: Yes (Death)
  Sender: FDA-Public Use
  Company Number: JP-DSJP-DSJ-2024-120992

PATIENT
  Age: 71 Year
  Sex: Female
  Weight: 45.1 kg

DRUGS (1)
  1. ENHERTU [Suspect]
     Active Substance: FAM-TRASTUZUMAB DERUXTECAN-NXKI
     Indication: Breast cancer
     Dosage: UNK, ONCE EVERY 3 WK
     Route: 041
     Dates: start: 20240304, end: 20240304

REACTIONS (1)
  - Disease progression [Fatal]
